FAERS Safety Report 17442112 (Version 2)
Quarter: 2020Q1

REPORT INFORMATION
  Report Type: Spontaneous
  Country: GB (occurrence: GB)
  Receive Date: 20200220
  Receipt Date: 20200313
  Transmission Date: 20200409
  Serious: Yes (Death)
  Sender: FDA-Public Use
  Company Number: GB-JNJFOC-20200219366

PATIENT
  Age: 52 Year
  Sex: Male
  Weight: 75 kg

DRUGS (21)
  1. DOLUTEGRAVIR [Concomitant]
     Active Substance: DOLUTEGRAVIR
     Route: 065
  2. TENOFOVIR DISOPROXIL FUMARATE + EMTRICITABINE [Concomitant]
     Active Substance: EMTRICITABINE\TENOFOVIR DISOPROXIL FUMARATE
     Route: 065
  3. AMIKACIN. [Concomitant]
     Active Substance: AMIKACIN
     Indication: PRODUCT USED FOR UNKNOWN INDICATION
     Route: 065
  4. SIRTURO [Suspect]
     Active Substance: BEDAQUILINE FUMARATE
     Indication: PULMONARY TUBERCULOSIS
     Route: 048
     Dates: start: 20190315, end: 20191220
  5. LINEZOLID. [Concomitant]
     Active Substance: LINEZOLID
     Route: 065
  6. ETHAMBUTOL [Concomitant]
     Active Substance: ETHAMBUTOL HYDROCHLORIDE
     Indication: PRODUCT USED FOR UNKNOWN INDICATION
     Route: 065
  7. SOFOSBUVIR [Concomitant]
     Active Substance: SOFOSBUVIR
     Route: 065
  8. ISONIAZID. [Concomitant]
     Active Substance: ISONIAZID
     Route: 065
  9. LEVOFLOXACIN. [Concomitant]
     Active Substance: LEVOFLOXACIN
     Route: 065
  10. CLOFAZIMINE [Concomitant]
     Active Substance: CLOFAZIMINE
     Indication: PRODUCT USED FOR UNKNOWN INDICATION
     Route: 065
  11. PIPERACILLIN AND TAZOBACTAM [Concomitant]
     Active Substance: PIPERACILLIN SODIUM\TAZOBACTAM SODIUM
     Indication: PRODUCT USED FOR UNKNOWN INDICATION
     Route: 065
     Dates: start: 20191207, end: 20191218
  12. PYRAZINAMIDE. [Concomitant]
     Active Substance: PYRAZINAMIDE
     Route: 065
  13. EMTRICITABINE [Concomitant]
     Active Substance: EMTRICITABINE
     Route: 065
  14. PROTIONAMIDE [Concomitant]
     Active Substance: PROTIONAMIDE
     Indication: PRODUCT USED FOR UNKNOWN INDICATION
     Route: 065
  15. MOXIFLOXACIN. [Concomitant]
     Active Substance: MOXIFLOXACIN
     Route: 065
  16. MEROPENEM. [Concomitant]
     Active Substance: MEROPENEM
     Route: 065
  17. VELPATASVIR [Concomitant]
     Active Substance: VELPATASVIR
     Indication: PRODUCT USED FOR UNKNOWN INDICATION
     Route: 065
  18. CYCLOSERINE. [Concomitant]
     Active Substance: CYCLOSERINE
     Indication: PULMONARY TUBERCULOSIS
     Route: 065
     Dates: start: 20190315, end: 20191220
  19. OSELTAMIVIR [Concomitant]
     Active Substance: OSELTAMIVIR
     Route: 065
  20. RIFATER [Concomitant]
     Active Substance: ISONIAZID\PYRAZINAMIDE\RIFAMPIN
     Indication: PRODUCT USED FOR UNKNOWN INDICATION
     Route: 065
     Dates: start: 20190219
  21. PYRIDOXINE [Concomitant]
     Active Substance: PYRIDOXINE
     Route: 065

REACTIONS (3)
  - Off label use [Unknown]
  - Intentional product use issue [Unknown]
  - Cardiac arrest [Fatal]
